FAERS Safety Report 23099739 (Version 1)
Quarter: 2023Q4

REPORT INFORMATION
  Report Type: Report from Study
  Country: US (occurrence: US)
  Receive Date: 20231024
  Receipt Date: 20231024
  Transmission Date: 20240109
  Serious: Yes (Hospitalization)
  Sender: FDA-Public Use
  Company Number: US-Eisai-EC-2023-151067

PATIENT
  Age: 77 Year
  Sex: Female
  Weight: 77.11 kg

DRUGS (10)
  1. LENVIMA [Suspect]
     Active Substance: LENVATINIB
     Indication: Endometrial cancer
     Route: 048
     Dates: start: 20230816, end: 202310
  2. SIMVASTATIN [Concomitant]
     Active Substance: SIMVASTATIN
     Dosage: FREQUENCY UNKNOWN
  3. NORTRIPTYLINE HYDROCHLORIDE [Concomitant]
     Active Substance: NORTRIPTYLINE HYDROCHLORIDE
     Dosage: FREQUENCY UNKNOWN
  4. MELOXICAM [Concomitant]
     Active Substance: MELOXICAM
     Dosage: FREQUENCY UNKNOWN
  5. ENALAPRIL MALEATE [Concomitant]
     Active Substance: ENALAPRIL MALEATE
     Dosage: FREQUENCY UNKNOWN
  6. POTASSIUM CHLORIDE [Concomitant]
     Active Substance: POTASSIUM CHLORIDE
     Dosage: DOSE AND FREQUENCY UNKNOWN
  7. PROPRANOLOL HYDROCHLORIDE [Concomitant]
     Active Substance: PROPRANOLOL HYDROCHLORIDE
     Dosage: FREQUENCY UNKNOWN
  8. PANTOPRAZOLE SODIUM [Concomitant]
     Active Substance: PANTOPRAZOLE SODIUM
     Dosage: FREQUENCY UNKNOWN
  9. KEYTRUDA [Concomitant]
     Active Substance: PEMBROLIZUMAB
     Dosage: 100 MG/4 ML, FREQUENCY UNKNOWN
  10. VITAMINS [Concomitant]
     Active Substance: VITAMINS
     Dosage: DOSE AND FREQUENCY UNKNOWN

REACTIONS (4)
  - Dehydration [Recovering/Resolving]
  - Decreased appetite [Recovering/Resolving]
  - Hypotension [Unknown]
  - Blood magnesium decreased [Unknown]

NARRATIVE: CASE EVENT DATE: 20231001
